FAERS Safety Report 13654202 (Version 3)
Quarter: 2017Q3

REPORT INFORMATION
  Report Type: Spontaneous
  Country: US (occurrence: US)
  Receive Date: 20170614
  Receipt Date: 20170809
  Transmission Date: 20171127
  Serious: Yes (Disabling, Other)
  Sender: FDA-Public Use
  Company Number: US-ASTRAZENECA-2017SE61671

PATIENT
  Age: 59 Year
  Sex: Male
  Weight: 53.1 kg

DRUGS (1)
  1. SYMBICORT [Suspect]
     Active Substance: BUDESONIDE\FORMOTEROL FUMARATE DIHYDRATE
     Indication: ASTHMA
     Dosage: 160/4.5 MCG, ONE PUFF TWICE PER DAY
     Route: 055
     Dates: start: 2012

REACTIONS (13)
  - Asthma [Unknown]
  - Intentional product misuse [Unknown]
  - Dysstasia [Not Recovered/Not Resolved]
  - Body height decreased [Unknown]
  - Respiratory disorder [Unknown]
  - Intentional product use issue [Unknown]
  - Device issue [Unknown]
  - Drug dose omission [Unknown]
  - Movement disorder [Not Recovered/Not Resolved]
  - Product quality issue [Unknown]
  - Osteoporosis [Not Recovered/Not Resolved]
  - Spinal deformity [Not Recovered/Not Resolved]
  - Visual impairment [Unknown]

NARRATIVE: CASE EVENT DATE: 2016
